FAERS Safety Report 21660770 (Version 1)
Quarter: 2022Q4

REPORT INFORMATION
  Report Type: Spontaneous
  Country: PL (occurrence: PL)
  Receive Date: 20221130
  Receipt Date: 20221130
  Transmission Date: 20230113
  Serious: Yes (Other)
  Sender: FDA-Public Use
  Company Number: PL-BAYER-2022A164613

PATIENT
  Age: 79 Year
  Sex: Female

DRUGS (1)
  1. XARELTO [Suspect]
     Active Substance: RIVAROXABAN
     Indication: Cardiovascular event prophylaxis
     Dosage: 20 MG
     Route: 048

REACTIONS (3)
  - Atrial fibrillation [Unknown]
  - Contusion [Unknown]
  - Hypertension [Unknown]
